FAERS Safety Report 4421550-8 (Version None)
Quarter: 2004Q3

REPORT INFORMATION
  Report Type: 
  Country: None (occurrence: None)
  Receive Date: 20040804
  Receipt Date: 20040723
  Transmission Date: 20050211
  Serious: Yes (Hospitalization)
  Sender: FDA-Public Use
  Company Number: WAES 0407USA02167

PATIENT
  Age: 73 Year
  Sex: Male

DRUGS (1)
  1. SINGULAIR [Suspect]
     Indication: ASTHMA
     Dosage: 10 MG/DAILY PO
     Route: 048
     Dates: start: 20040712, end: 20040516

REACTIONS (1)
  - INTERSTITIAL LUNG DISEASE [None]
